FAERS Safety Report 15744442 (Version 1)
Quarter: 2018Q4

REPORT INFORMATION
  Report Type: Report from Study
  Country: BR (occurrence: BR)
  Receive Date: 20181220
  Receipt Date: 20181220
  Transmission Date: 20190205
  Serious: Yes (Other)
  Sender: FDA-Public Use
  Company Number: PHHY2018BR188081

PATIENT
  Sex: Female
  Weight: 80 kg

DRUGS (1)
  1. TRAVATAN [Suspect]
     Active Substance: TRAVOPROST
     Indication: GLAUCOMA
     Dosage: 0.04 MG, Q12H (1 DROP IN EACH EYE)
     Route: 047

REACTIONS (2)
  - Cough [Recovering/Resolving]
  - Choking [Recovering/Resolving]
